FAERS Safety Report 7776610-0 (Version None)
Quarter: 2011Q3

REPORT INFORMATION
  Report Type: 
  Country: None (occurrence: None)
  Receive Date: 20110922
  Receipt Date: 20110922
  Transmission Date: 20111222
  Serious: Yes (Hospitalization)
  Sender: FDA-Public Use
  Company Number: None

PATIENT
  Age: 64 Year
  Sex: Male
  Weight: 109.1 kg

DRUGS (2)
  1. METOCLOPRAMIDE [Suspect]
     Dosage: 10 MG TID PO 150 MG BID PO
     Route: 048
     Dates: start: 20101116, end: 20110121
  2. METOCLOPRAMIDE [Suspect]
     Dosage: 10 MG TID PO 150 MG BID PO
     Route: 048
     Dates: start: 20100724, end: 20110121

REACTIONS (1)
  - TREMOR [None]
